FAERS Safety Report 10711493 (Version 1)
Quarter: 2015Q1

REPORT INFORMATION
  Report Type: Spontaneous
  Country: US (occurrence: US)
  Receive Date: 20150114
  Receipt Date: 20150114
  Transmission Date: 20150721
  Serious: Yes (Death)
  Sender: FDA-Public Use
  Company Number: US-PFIZER INC-2015008606

PATIENT
  Age: 22 Year
  Sex: Male

DRUGS (8)
  1. QUININE [Suspect]
     Active Substance: QUININE
  2. OXYCODONE [Suspect]
     Active Substance: OXYCODONE
  3. HYDROXYZINE PAMOATE. [Suspect]
     Active Substance: HYDROXYZINE PAMOATE
  4. COCAINE [Suspect]
     Active Substance: COCAINE
  5. BUPROPION [Suspect]
     Active Substance: BUPROPION
  6. CODEINE [Suspect]
     Active Substance: CODEINE
  7. HEROIN [Suspect]
     Active Substance: DIACETYLMORPHINE
  8. TRAZODONE [Suspect]
     Active Substance: TRAZODONE HYDROCHLORIDE

REACTIONS (1)
  - Drug abuse [Fatal]

NARRATIVE: CASE EVENT DATE: 2013
